FAERS Safety Report 26161866 (Version 2)
Quarter: 2025Q4

REPORT INFORMATION
  Report Type: Spontaneous
  Country: US (occurrence: US)
  Receive Date: 20251216
  Receipt Date: 20251231
  Transmission Date: 20260118
  Serious: Yes (Other)
  Sender: AUROBINDO
  Company Number: US-MLMSERVICE-20251127-PI724143-00042-2

PATIENT
  Age: 69 Year
  Sex: Male

DRUGS (8)
  1. ALFUZOSIN [Suspect]
     Active Substance: ALFUZOSIN
     Indication: Benign prostatic hyperplasia
     Dosage: UNK
     Route: 065
  2. TAMSULOSIN [Suspect]
     Active Substance: TAMSULOSIN
     Indication: Benign prostatic hyperplasia
     Dosage: UNK
     Route: 065
  3. AMPICILLIN [Suspect]
     Active Substance: AMPICILLIN
     Indication: Product used for unknown indication
     Dosage: UNK
     Route: 065
  4. AMOXICILLIN\CLAVULANIC ACID [Suspect]
     Active Substance: AMOXICILLIN\CLAVULANIC ACID
     Indication: Product used for unknown indication
     Dosage: UNK
     Route: 065
  5. SULFAMETHOXAZOLE\TRIMETHOPRIM [Suspect]
     Active Substance: SULFAMETHOXAZOLE\TRIMETHOPRIM
     Indication: Product used for unknown indication
     Dosage: UNK
     Route: 065
  6. CIPROFLOXACIN [Suspect]
     Active Substance: CIPROFLOXACIN
     Indication: Product used for unknown indication
     Dosage: 500 MILLIGRAM, TWO TIMES A DAY
     Route: 065
  7. CIPROFLOXACIN [Suspect]
     Active Substance: CIPROFLOXACIN
     Dosage: UNK (2.5  WEEKS)
     Route: 065
  8. MOXIFLOXACIN [Suspect]
     Active Substance: MOXIFLOXACIN
     Indication: Product used for unknown indication
     Dosage: UNK (TOTAL OF 4 WEEKS)
     Route: 065

REACTIONS (5)
  - Retrograde ejaculation [Recovering/Resolving]
  - Bacterial prostatitis [Recovering/Resolving]
  - Rash [Recovering/Resolving]
  - Drug hypersensitivity [Recovering/Resolving]
  - Diarrhoea [Recovering/Resolving]
